FAERS Safety Report 7156185-X (Version None)
Quarter: 2010Q4

REPORT INFORMATION
  Report Type: 
  Country: None (occurrence: None)
  Receive Date: 20101214
  Receipt Date: 20101201
  Transmission Date: 20110411
  Serious: Yes (Death, Hospitalization, Other)
  Sender: FDA-Public Use
  Company Number: US-ELI_LILLY_AND_COMPANY-US201011006046

PATIENT
  Sex: Male

DRUGS (8)
  1. FORTEO [Suspect]
     Indication: OSTEOPOROSIS
     Dosage: 20 UG, DAILY (1/D)
  2. DILTIAZEM [Concomitant]
  3. VITAMIN D [Concomitant]
  4. VITAMIN B-12 [Concomitant]
  5. NASAL SPRAY [Concomitant]
  6. CALCIUM CITRATE [Concomitant]
  7. LASIX [Concomitant]
  8. FLEXERIL [Concomitant]

REACTIONS (14)
  - ABDOMINAL HERNIA OBSTRUCTIVE [None]
  - BLOOD GASES ABNORMAL [None]
  - BLOOD PRESSURE DECREASED [None]
  - CARDIAC DISORDER [None]
  - CEREBROVASCULAR ACCIDENT [None]
  - DEHYDRATION [None]
  - HYPOPHAGIA [None]
  - INFREQUENT BOWEL MOVEMENTS [None]
  - NAUSEA [None]
  - NONSPECIFIC REACTION [None]
  - OXYGEN SATURATION DECREASED [None]
  - POST PROCEDURAL HAEMORRHAGE [None]
  - PULMONARY EMBOLISM [None]
  - VOMITING [None]
